FAERS Safety Report 18273072 (Version 1)
Quarter: 2020Q3

REPORT INFORMATION
  Report Type: Spontaneous
  Country: US (occurrence: US)
  Receive Date: 20200916
  Receipt Date: 20200916
  Transmission Date: 20201103
  Serious: Yes (Other)
  Sender: FDA-Public Use
  Company Number: None

PATIENT
  Age: 75 Year
  Sex: Female
  Weight: 71.1 kg

DRUGS (7)
  1. VITAMIN E [Concomitant]
     Active Substance: .ALPHA.-TOCOPHEROL
  2. ANASTROZOLE. [Concomitant]
     Active Substance: ANASTROZOLE
  3. VITAMIN D3 [Concomitant]
     Active Substance: CHOLECALCIFEROL
  4. NATURE MADE MULTI+OMEGA?3 GUMMIES [Concomitant]
  5. CALCIUM 1200 MG. GUMMIES [Concomitant]
  6. PRADAXA [Suspect]
     Active Substance: DABIGATRAN ETEXILATE MESYLATE
     Indication: ATRIAL FIBRILLATION
     Dosage: ?          QUANTITY:1 CAPSULE(S);?
     Route: 048
     Dates: start: 20200430, end: 20200904
  7. MAGNESIUM [Concomitant]
     Active Substance: MAGNESIUM

REACTIONS (6)
  - Troponin increased [None]
  - Abdominal discomfort [None]
  - Therapy cessation [None]
  - Hyperadrenalism [None]
  - Dyspnoea exertional [None]
  - Asthenia [None]

NARRATIVE: CASE EVENT DATE: 20200505
